FAERS Safety Report 6801858-9 (Version None)
Quarter: 2010Q2

REPORT INFORMATION
  Report Type: 
  Country: None (occurrence: None)
  Receive Date: 20100629
  Receipt Date: 20100622
  Transmission Date: 20101027
  Serious: Yes (Other)
  Sender: FDA-Public Use
  Company Number: US-PFIZER INC-2010060012

PATIENT
  Sex: Female
  Weight: 62 kg

DRUGS (4)
  1. CHANTIX [Suspect]
     Indication: SMOKING CESSATION THERAPY
     Dosage: 0.5 MG, 1X/DAY
     Route: 048
     Dates: start: 20100321
  2. CHANTIX [Suspect]
     Dosage: 1 MG, 2X/DAY
     Dates: end: 20100401
  3. CELEXA [Concomitant]
     Indication: DEPRESSION
     Dosage: 10 MG, UNK
  4. CELEXA [Concomitant]
     Indication: ANXIETY

REACTIONS (2)
  - AGITATION [None]
  - SKIN EXFOLIATION [None]
